FAERS Safety Report 21300344 (Version 1)
Quarter: 2022Q3

REPORT INFORMATION
  Report Type: Other
  Country: None (occurrence: SG)
  Receive Date: 20220907
  Receipt Date: 20220907
  Transmission Date: 20221027
  Serious: Yes (Hospitalization)
  Sender: FDA-Public Use
  Company Number: SG-OrBion Pharmaceuticals Private Limited-2132606

PATIENT

DRUGS (2)
  1. AMLODIPINE BESYLATE [Suspect]
     Active Substance: AMLODIPINE BESYLATE
     Route: 065
  2. QUETIAPINE [Concomitant]
     Active Substance: QUETIAPINE
     Route: 065

REACTIONS (8)
  - Somnolence [Recovered/Resolved]
  - Tachycardia [Recovered/Resolved]
  - Hypotension [Recovered/Resolved]
  - Acidosis [Recovered/Resolved]
  - Vasoplegia syndrome [Recovered/Resolved]
  - Shock [Recovered/Resolved]
  - Drug level above therapeutic [Recovered/Resolved]
  - Overdose [Recovered/Resolved]
